FAERS Safety Report 9319305 (Version 1)
Quarter: 2013Q2

REPORT INFORMATION
  Report Type: Spontaneous
  Country: DE (occurrence: DE)
  Receive Date: 20130530
  Receipt Date: 20130530
  Transmission Date: 20140414
  Serious: Yes (Congenital Anomaly, Other)
  Sender: FDA-Public Use
  Company Number: DE-MYLANLABS-2013S1010661

PATIENT
  Age: 0 Year
  Sex: Male
  Weight: 4.12 kg

DRUGS (5)
  1. VENLAFAXINE [Suspect]
     Route: 064
     Dates: start: 20111102, end: 20120727
  2. QUILONORM /00033702/ [Suspect]
     Route: 064
     Dates: start: 20111102, end: 20120727
  3. QUILONORM /00033702/ [Suspect]
  4. SEROQUEL [Suspect]
     Indication: BIPOLAR DISORDER
     Route: 064
     Dates: start: 20111102, end: 20120727
  5. FOLIC ACID [Concomitant]
     Indication: PROPHYLAXIS OF NEURAL TUBE DEFECT
     Route: 064
     Dates: start: 20111102, end: 20120727

REACTIONS (8)
  - Congenital hydronephrosis [Unknown]
  - Persistent foetal circulation [Unknown]
  - Exposure during pregnancy [Recovered/Resolved]
  - Neonatal respiratory distress syndrome [Recovered/Resolved]
  - Drug withdrawal syndrome neonatal [Recovered/Resolved]
  - Bundle branch block right [Unknown]
  - Large for dates baby [Unknown]
  - Left ventricular hypertrophy [Unknown]
